FAERS Safety Report 5750732-8 (Version None)
Quarter: 2008Q2

REPORT INFORMATION
  Report Type: 
  Country: None (occurrence: None)
  Receive Date: 20080523
  Receipt Date: 20080523
  Transmission Date: 20081010
  Serious: Yes (Life-Threatening)
  Sender: FDA-Public Use
  Company Number: None

PATIENT
  Age: 34 Year
  Sex: Female
  Weight: 66.2252 kg

DRUGS (1)
  1. CEFAZOLIN [Suspect]
     Indication: HYSTERECTOMY
     Dosage: 1 GM X1 IV
     Route: 042
     Dates: start: 20080508

REACTIONS (7)
  - ANAPHYLACTIC REACTION [None]
  - BLOOD PRESSURE DECREASED [None]
  - CIRCULATORY COLLAPSE [None]
  - CIRCUMORAL OEDEMA [None]
  - HEART RATE INCREASED [None]
  - OEDEMA [None]
  - RASH MORBILLIFORM [None]
